FAERS Safety Report 19206035 (Version 5)
Quarter: 2021Q4

REPORT INFORMATION
  Report Type: Report from Study
  Country: GB (occurrence: GB)
  Receive Date: 20210503
  Receipt Date: 20211013
  Transmission Date: 20220303
  Serious: Yes (Other)
  Sender: FDA-Public Use
  Company Number: GB-ROCHE-1699886

PATIENT
  Age: 53 Year
  Sex: Female

DRUGS (16)
  1. DOCETAXEL [Suspect]
     Active Substance: DOCETAXEL
     Indication: Breast cancer
     Dosage: 1 CYCLE PER REGIMEN
     Route: 042
     Dates: start: 20151204, end: 20151204
  2. DOCETAXEL [Suspect]
     Active Substance: DOCETAXEL
     Dosage: 5 CYCLES PER REGIMEN, Q3W
     Route: 042
     Dates: start: 20151223, end: 20160113
  3. DOCETAXEL [Suspect]
     Active Substance: DOCETAXEL
     Dosage: 90 MILLIGRAM, Q3W, TIW
     Route: 042
     Dates: start: 20160203, end: 20160316
  4. DOCETAXEL [Suspect]
     Active Substance: DOCETAXEL
     Dosage: UNK
  5. TRASTUZUMAB [Suspect]
     Active Substance: TRASTUZUMAB
     Indication: Breast cancer
     Dosage: 1071 MG, QD (LOADING DOSE 1 CYCLE PER REGIMEN)
     Route: 041
     Dates: start: 20151203, end: 20151203
  6. TRASTUZUMAB [Suspect]
     Active Substance: TRASTUZUMAB
     Dosage: MAINTENANCE DOSE
     Route: 042
     Dates: start: 20151223, end: 20160113
  7. TRASTUZUMAB [Suspect]
     Active Substance: TRASTUZUMAB
     Dosage: 735 MG, Q3W (MAINTENANCE DOSE)
     Route: 042
     Dates: start: 20160203
  8. DENOSUMAB [Suspect]
     Active Substance: DENOSUMAB
     Indication: Metastases to bone
     Dosage: 120 MILLIGRAM, Q3W
     Route: 058
     Dates: start: 20151203
  9. DENOSUMAB [Suspect]
     Active Substance: DENOSUMAB
     Indication: Breast cancer
     Dosage: UNK
  10. DENOSUMAB [Suspect]
     Active Substance: DENOSUMAB
     Dosage: UNK (FORM STRENGTH: 245 (UNIT NOT REPORTED)
  11. DENOSUMAB [Suspect]
     Active Substance: DENOSUMAB
     Dosage: UNK
  12. PERTUZUMAB [Suspect]
     Active Substance: PERTUZUMAB
     Indication: Breast cancer
     Dosage: MAINTAINENCE DOSE
     Route: 042
     Dates: start: 20151223, end: 20160720
  13. PERTUZUMAB [Suspect]
     Active Substance: PERTUZUMAB
     Dosage: LADING DOSE, 1 CYCLE PER REGIMEN
     Route: 042
     Dates: start: 20151203, end: 20151203
  14. PERTUZUMAB [Suspect]
     Active Substance: PERTUZUMAB
     Dosage: 420 MILLIGRAM, Q3W
     Route: 042
     Dates: start: 20160720
  15. ADO-TRASTUZUMAB EMTANSINE [Suspect]
     Active Substance: ADO-TRASTUZUMAB EMTANSINE
     Indication: Breast cancer
     Dosage: 450 MILLIGRAM, Q3W
     Route: 042
     Dates: start: 20160817, end: 20161109
  16. ADO-TRASTUZUMAB EMTANSINE [Suspect]
     Active Substance: ADO-TRASTUZUMAB EMTANSINE
     Dosage: UNK

REACTIONS (13)
  - Diabetes mellitus [Not Recovered/Not Resolved]
  - Spinal pain [Recovered/Resolved]
  - Onychomycosis [Unknown]
  - Decreased appetite [Unknown]
  - Blood cholesterol increased [Unknown]
  - Depressed mood [Recovered/Resolved]
  - Migraine [Recovered/Resolved]
  - Nail discolouration [Unknown]
  - Diarrhoea [Recovered/Resolved]
  - Fatigue [Recovering/Resolving]
  - Vomiting [Recovered/Resolved]
  - Cough [Not Recovered/Not Resolved]
  - Dyspnoea [Unknown]

NARRATIVE: CASE EVENT DATE: 20151203
